FAERS Safety Report 6054346-4 (Version None)
Quarter: 2009Q1

REPORT INFORMATION
  Report Type: 
  Country: None (occurrence: None)
  Receive Date: 20090127
  Receipt Date: 20090118
  Transmission Date: 20090719
  Serious: Yes (Hospitalization)
  Sender: FDA-Public Use
  Company Number: PHHY2008CA27961

PATIENT
  Sex: Female

DRUGS (1)
  1. DIOVAN [Suspect]
     Indication: HYPERTENSION
     Dosage: 160 MG, UNK

REACTIONS (4)
  - AORTIC VALVE DISEASE [None]
  - AORTIC VALVE REPLACEMENT [None]
  - CORONARY ARTERY BYPASS [None]
  - HYPERTENSION [None]
